FAERS Safety Report 8436016-8 (Version None)
Quarter: 2012Q2

REPORT INFORMATION
  Report Type: 
  Country: None (occurrence: None)
  Receive Date: 20120614
  Receipt Date: 20120517
  Transmission Date: 20120825
  Serious: Yes (Other)
  Sender: FDA-Public Use
  Company Number: JP-ROCHE-1076781

PATIENT
  Sex: Male
  Weight: 68.055 kg

DRUGS (13)
  1. CHLORMADINONE ACETATE TAB [Concomitant]
  2. NORVASC [Concomitant]
  3. RANIBIZUMAB [Suspect]
     Indication: AGE-RELATED MACULAR DEGENERATION
     Route: 050
     Dates: start: 20090327
  4. RANIBIZUMAB [Suspect]
     Route: 050
     Dates: start: 20110610
  5. VISUDYNE [Concomitant]
  6. VERAPAMIL HCL [Concomitant]
  7. SUNRYTHM [Concomitant]
  8. MARZULENE [Concomitant]
  9. RANIBIZUMAB [Suspect]
     Route: 050
     Dates: start: 20110715
  10. LEVOFLOXACIN [Concomitant]
  11. CANDESARTAN CILEXETIL [Concomitant]
  12. MAGNESIUM OXIDE [Concomitant]
  13. GLYBURIDE [Concomitant]

REACTIONS (1)
  - ASTHENIA [None]
